FAERS Safety Report 4740784-6 (Version None)
Quarter: 2005Q3

REPORT INFORMATION
  Report Type: 
  Country: None (occurrence: None)
  Receive Date: 20050806
  Receipt Date: 20050806
  Transmission Date: 20060218
  Serious: Yes (Life-Threatening, Hospitalization)
  Sender: FDA-Public Use
  Company Number: None

PATIENT
  Sex: Male
  Weight: 84 kg

DRUGS (1)
  1. CETUXIMAB 400 MG/M^2 [Suspect]
     Indication: RECTAL CANCER METASTATIC
     Dosage: FIRST DOSE - IV
     Route: 042
     Dates: start: 20050808

REACTIONS (7)
  - DRUG HYPERSENSITIVITY [None]
  - DRUG TOXICITY [None]
  - HYPOTENSION [None]
  - HYPOXIA [None]
  - INFUSION RELATED REACTION [None]
  - RESPIRATORY ARREST [None]
  - SHOCK [None]
